FAERS Safety Report 11400964 (Version 2)
Quarter: 2015Q4

REPORT INFORMATION
  Report Type: Spontaneous
  Country: US (occurrence: US)
  Receive Date: 20150820
  Receipt Date: 20151009
  Transmission Date: 20160304
  Serious: Yes (Hospitalization, Other)
  Sender: FDA-Public Use
  Company Number: US-BAYER-2015-403571

PATIENT
  Sex: Female

DRUGS (1)
  1. ALEVE [Suspect]
     Active Substance: NAPROXEN SODIUM
     Indication: ARTHRITIS

REACTIONS (6)
  - Gastrointestinal ulcer haemorrhage [Unknown]
  - Product use issue [None]
  - Pain [None]
  - Cardiac disorder [None]
  - Product use issue [Unknown]
  - Therapeutic response unexpected [Unknown]
